FAERS Safety Report 24886191 (Version 2)
Quarter: 2025Q1

REPORT INFORMATION
  Report Type: Spontaneous
  Country: US (occurrence: US)
  Receive Date: 20250125
  Receipt Date: 20250301
  Transmission Date: 20250409
  Serious: No
  Sender: SANOFI AVENTIS
  Company Number: US-SA-2025SA022043

PATIENT
  Age: 77 Year
  Sex: Female
  Weight: 121 kg

DRUGS (12)
  1. DUPIXENT [Suspect]
     Active Substance: DUPILUMAB
     Indication: Dermatitis atopic
     Route: 058
     Dates: start: 20250111, end: 20250111
  2. DUPIXENT [Suspect]
     Active Substance: DUPILUMAB
     Dosage: 300 MG, QOW
     Route: 058
     Dates: start: 2025
  3. HUMIRA [Suspect]
     Active Substance: ADALIMUMAB
     Route: 065
  4. CANDESARTAN CILEXETIL [Concomitant]
     Active Substance: CANDESARTAN CILEXETIL
  5. KETOCONAZOLE [Concomitant]
     Active Substance: KETOCONAZOLE
  6. CHLORTHALIDONE [Concomitant]
     Active Substance: CHLORTHALIDONE
  7. ATACAND [Concomitant]
     Active Substance: CANDESARTAN CILEXETIL
  8. POTASSIUM [Concomitant]
     Active Substance: POTASSIUM
  9. ELIQUIS [Concomitant]
     Active Substance: APIXABAN
  10. TYLENOL [Concomitant]
     Active Substance: ACETAMINOPHEN
  11. HYDROCHLOROTHIAZIDE [Concomitant]
     Active Substance: HYDROCHLOROTHIAZIDE
  12. AMLODIPINE BESYLATE [Concomitant]
     Active Substance: AMLODIPINE BESYLATE

REACTIONS (3)
  - Skin ulcer [Unknown]
  - Skin weeping [Unknown]
  - Incorrect dose administered [Unknown]

NARRATIVE: CASE EVENT DATE: 20250101
